FAERS Safety Report 25634356 (Version 1)
Quarter: 2025Q3

REPORT INFORMATION
  Report Type: Report from Study
  Country: US (occurrence: US)
  Receive Date: 20250801
  Receipt Date: 20250801
  Transmission Date: 20251021
  Serious: Yes (Death, Hospitalization)
  Sender: ROCHE
  Company Number: US-ROCHE-10000349684

PATIENT

DRUGS (9)
  1. RITUXAN [Suspect]
     Active Substance: RITUXIMAB
     Indication: Autoimmune disorder
     Route: 065
  2. OCREVUS [Suspect]
     Active Substance: OCRELIZUMAB
     Indication: Autoimmune disorder
     Route: 065
  3. GAZYVA [Suspect]
     Active Substance: OBINUTUZUMAB
     Indication: Autoimmune disorder
     Route: 065
  4. BRIUMVI [Suspect]
     Active Substance: UBLITUXIMAB-XIIY
     Indication: Autoimmune disorder
     Route: 065
  5. ARZERRA [Suspect]
     Active Substance: OFATUMUMAB
     Indication: Autoimmune disorder
     Route: 065
  6. KESIMPTA [Suspect]
     Active Substance: OFATUMUMAB
     Indication: Autoimmune disorder
     Route: 065
  7. RIABNI [Suspect]
     Active Substance: RITUXIMAB-ARRX
     Indication: Autoimmune disorder
     Route: 065
  8. RUXIENCE [Suspect]
     Active Substance: RITUXIMAB-PVVR
     Indication: Autoimmune disorder
     Route: 065
  9. TRUXIMA [Suspect]
     Active Substance: RITUXIMAB-ABBS
     Indication: Autoimmune disorder
     Route: 065

REACTIONS (1)
  - West Nile viral infection [Fatal]
